FAERS Safety Report 9346946 (Version 3)
Quarter: 2013Q4

REPORT INFORMATION
  Report Type: Report from Study
  Country: BR (occurrence: BR)
  Receive Date: 20130613
  Receipt Date: 20131126
  Transmission Date: 20140711
  Serious: Yes (Other)
  Sender: FDA-Public Use
  Company Number: PHHY2013BR060217

PATIENT
  Age: 72 Year
  Sex: Female
  Weight: 46.5 kg

DRUGS (10)
  1. ACLASTA [Suspect]
     Indication: OSTEOPOROSIS
     Dosage: 5 MG, UNK
     Route: 042
     Dates: start: 2012
  2. CAPTOPRIL [Concomitant]
     Indication: HYPERTENSION
     Dosage: 2 DF, DAILY
     Route: 048
     Dates: start: 2008
  3. HYDROCHLOROTHIAZIDE [Concomitant]
     Indication: HYPERTENSION
     Dosage: 1 DF, DAILY
     Route: 048
  4. PAROXETINE [Concomitant]
     Indication: INSOMNIA
     Dosage: 0.5 DF, DAILY
     Route: 048
  5. AD-TIL [Concomitant]
     Dosage: 5 DRP, DAILY
     Route: 048
     Dates: start: 2007
  6. GINKO BILOBA [Concomitant]
     Indication: TINNITUS
     Dosage: 1 DF, DAILY
     Route: 048
     Dates: start: 2009
  7. CLONAZEPAM [Concomitant]
     Indication: INSOMNIA
     Dosage: 0.5 DF, DAILY
     Route: 048
  8. MIRACAL                            /00944201/ [Concomitant]
     Indication: OSTEOPOROSIS
     Dosage: 1 DF, DAILY
     Route: 048
  9. MULTIVITAMIN AND MINERAL [Concomitant]
     Dosage: UNK
     Dates: start: 2009
  10. MIRTAZAPINE [Concomitant]
     Dosage: UNK
     Dates: start: 2013

REACTIONS (4)
  - Varicose vein [Recovered/Resolved]
  - Haemorrhage [Recovering/Resolving]
  - Weight decreased [Recovering/Resolving]
  - Thrombosis [Recovering/Resolving]
